FAERS Safety Report 24004322 (Version 2)
Quarter: 2025Q4

REPORT INFORMATION
  Report Type: Spontaneous
  Country: TW (occurrence: TW)
  Receive Date: 20240624
  Receipt Date: 20251103
  Transmission Date: 20260117
  Serious: Yes (Other)
  Sender: ASTELLAS
  Company Number: TW-ASTELLAS-2024US017661

PATIENT
  Age: 68 Year
  Sex: Male

DRUGS (21)
  1. PADCEV [Suspect]
     Active Substance: ENFORTUMAB VEDOTIN-EJFV
     Indication: Transitional cell carcinoma
     Dosage: 60 MG, CYCLIC
     Route: 065
     Dates: start: 20231207
  2. PADCEV [Suspect]
     Active Substance: ENFORTUMAB VEDOTIN-EJFV
     Dosage: 80 MG, CYCLIC
     Route: 065
     Dates: start: 20231214
  3. PADCEV [Suspect]
     Active Substance: ENFORTUMAB VEDOTIN-EJFV
     Dosage: 90 MG, CYCLIC
     Route: 065
     Dates: start: 20231221
  4. PADCEV [Suspect]
     Active Substance: ENFORTUMAB VEDOTIN-EJFV
     Dosage: 90 MG, CYCLIC
     Route: 065
     Dates: start: 20240104
  5. PADCEV [Suspect]
     Active Substance: ENFORTUMAB VEDOTIN-EJFV
     Dosage: 90 MG, CYCLIC
     Route: 065
     Dates: start: 20240111, end: 20240118
  6. PADCEV [Suspect]
     Active Substance: ENFORTUMAB VEDOTIN-EJFV
     Dosage: 90 MG, CYCLIC
     Route: 065
     Dates: start: 20240201
  7. PADCEV [Suspect]
     Active Substance: ENFORTUMAB VEDOTIN-EJFV
     Dosage: 90 MG, CYCLIC
     Route: 065
     Dates: start: 20240208
  8. PADCEV [Suspect]
     Active Substance: ENFORTUMAB VEDOTIN-EJFV
     Dosage: 90 MG, CYCLIC
     Route: 065
     Dates: start: 20240215
  9. PADCEV [Suspect]
     Active Substance: ENFORTUMAB VEDOTIN-EJFV
     Dosage: 90 MG, CYCLIC
     Route: 065
     Dates: start: 20240229, end: 20240307
  10. PADCEV [Suspect]
     Active Substance: ENFORTUMAB VEDOTIN-EJFV
     Dosage: 90 MG, CYCLIC
     Route: 065
     Dates: start: 20240314
  11. PADCEV [Suspect]
     Active Substance: ENFORTUMAB VEDOTIN-EJFV
     Dosage: 75 MG, CYCLIC
     Route: 065
     Dates: start: 20240321
  12. PADCEV [Suspect]
     Active Substance: ENFORTUMAB VEDOTIN-EJFV
     Dosage: 75 MG, CYCLIC
     Route: 065
     Dates: start: 20240411
  13. PADCEV [Suspect]
     Active Substance: ENFORTUMAB VEDOTIN-EJFV
     Route: 065
     Dates: start: 20240516
  14. PADCEV [Suspect]
     Active Substance: ENFORTUMAB VEDOTIN-EJFV
     Route: 065
     Dates: start: 20240523
  15. PADCEV [Suspect]
     Active Substance: ENFORTUMAB VEDOTIN-EJFV
     Route: 065
     Dates: start: 20240606
  16. PADCEV [Suspect]
     Active Substance: ENFORTUMAB VEDOTIN-EJFV
     Route: 065
     Dates: start: 20240613
  17. PADCEV [Suspect]
     Active Substance: ENFORTUMAB VEDOTIN-EJFV
     Route: 065
     Dates: start: 20240627
  18. PADCEV [Suspect]
     Active Substance: ENFORTUMAB VEDOTIN-EJFV
     Route: 065
     Dates: start: 20240704
  19. PADCEV [Suspect]
     Active Substance: ENFORTUMAB VEDOTIN-EJFV
     Route: 065
     Dates: start: 20240718
  20. DEXCHLORPHENIRAMINE MALEATE [Concomitant]
     Active Substance: DEXCHLORPHENIRAMINE MALEATE
     Indication: Product used for unknown indication
     Dosage: 1 UNKNOWN UNITS, AS NEEDED (PRN)
     Route: 065
     Dates: start: 20231207, end: 20240104
  21. DIPHENHYDRAMINE [Concomitant]
     Active Substance: DIPHENHYDRAMINE
     Indication: Product used for unknown indication
     Dosage: 1 DF, ONCE WEEKLY
     Route: 065
     Dates: start: 20231207, end: 20240104

REACTIONS (7)
  - Hepatic neoplasm [Unknown]
  - Neuropathy peripheral [Unknown]
  - Lichenoid keratosis [Recovering/Resolving]
  - Mucosal inflammation [Recovering/Resolving]
  - Dermatitis [Recovering/Resolving]
  - Blister [Recovering/Resolving]
  - Off label use [Unknown]

NARRATIVE: CASE EVENT DATE: 20231228
